FAERS Safety Report 15182213 (Version 1)
Quarter: 2018Q3

REPORT INFORMATION
  Report Type: Report from Study
  Country: US (occurrence: US)
  Receive Date: 20180723
  Receipt Date: 20180723
  Transmission Date: 20181010
  Serious: No
  Sender: FDA-Public Use
  Company Number: US-AMGEN-USASL2018092339

PATIENT
  Sex: Female

DRUGS (1)
  1. REPATHA [Suspect]
     Active Substance: EVOLOCUMAB
     Indication: PRODUCT USED FOR UNKNOWN INDICATION
     Dosage: 140 MG, QWK
     Route: 058

REACTIONS (5)
  - Rash pruritic [Unknown]
  - Off label use [Unknown]
  - Sneezing [Unknown]
  - Eye pruritus [Unknown]
  - Nasal ulcer [Unknown]
